FAERS Safety Report 10971658 (Version 3)
Quarter: 2015Q3

REPORT INFORMATION
  Report Type: Report from Study
  Country: US (occurrence: US)
  Receive Date: 20150331
  Receipt Date: 20150911
  Transmission Date: 20151125
  Serious: Yes (Hospitalization, Other)
  Sender: FDA-Public Use
  Company Number: US-GILEAD-2015-0140527

PATIENT
  Age: 15 Year
  Sex: Female

DRUGS (1)
  1. AMBRISENTAN [Suspect]
     Active Substance: AMBRISENTAN
     Indication: PORTOPULMONARY HYPERTENSION
     Dosage: 10 MG, QD
     Route: 065
     Dates: start: 20140522

REACTIONS (4)
  - Off label use [Unknown]
  - Hepatic neoplasm [Unknown]
  - Migraine [Unknown]
  - Syncope [Unknown]

NARRATIVE: CASE EVENT DATE: 20140522
